FAERS Safety Report 9251815 (Version 1)
Quarter: 2013Q1

REPORT INFORMATION
  Report Type: Spontaneous
  Country: US (occurrence: None)
  Receive Date: 20130305
  Receipt Date: 20130305
  Transmission Date: 20140127
  Serious: Yes (Other)
  Sender: FDA-Public Use
  Company Number: 163-21880-12081751

PATIENT
  Age: 63 Year
  Sex: Female
  Weight: 74.84 kg

DRUGS (2)
  1. REVLIMID (LENALIDOMIDE) [Suspect]
     Indication: PLASMA CELL MYELOMA
     Dates: start: 20120214
  2. HYPERTENSION MEDICATION [Concomitant]

REACTIONS (2)
  - White blood cell count decreased [None]
  - Hypertension [None]
